FAERS Safety Report 8804990 (Version 1)
Quarter: 2012Q4

REPORT INFORMATION
  Report Type: 
  Country: US (occurrence: US)
  Receive Date: 20120924
  Receipt Date: 20120924
  Transmission Date: 20130627
  Serious: Yes (Death)
  Sender: FDA-Public Use
  Company Number: US-ROCHE-1123168

PATIENT
  Sex: Female

DRUGS (4)
  1. AVASTIN [Suspect]
     Indication: BREAST CANCER FEMALE
     Route: 065
     Dates: start: 20060713
  2. AVASTIN [Suspect]
     Route: 065
     Dates: start: 20060727
  3. AVASTIN [Suspect]
     Route: 065
     Dates: start: 20060810
  4. ABRAXANE [Concomitant]
     Route: 065
     Dates: start: 20060713

REACTIONS (1)
  - Death [Fatal]
